FAERS Safety Report 18035539 (Version 4)
Quarter: 2021Q1

REPORT INFORMATION
  Report Type: Report from Study
  Country: US (occurrence: US)
  Receive Date: 20200717
  Receipt Date: 20210316
  Transmission Date: 20210419
  Serious: Yes (Hospitalization)
  Sender: FDA-Public Use
  Company Number: US-ROCHE-2639598

PATIENT
  Age: 56 Year
  Sex: Male
  Weight: 97.43 kg

DRUGS (9)
  1. IBRUTINIB [Suspect]
     Active Substance: IBRUTINIB
     Indication: CHRONIC LYMPHOCYTIC LEUKAEMIA
     Dosage: 13/MAY/2019 WAS THE START DATE OF FIRST COURSE, LAST ADMINISTERED DATE 25/MAR/2020.?ONCE A DAY ON DA
     Route: 048
     Dates: start: 20190513
  2. OBINUTUZUMAB. [Suspect]
     Active Substance: OBINUTUZUMAB
     Indication: CHRONIC LYMPHOCYTIC LEUKAEMIA
     Dosage: LAST ADMINISTERED DATE WAS ON 01/OCT/2019
     Route: 042
  3. OBINUTUZUMAB. [Suspect]
     Active Substance: OBINUTUZUMAB
     Dosage: 13/MAY/2019 WAS THE START DATE OF FIRST COURSE
     Route: 042
     Dates: start: 20190513
  4. VENETOCLAX. [Suspect]
     Active Substance: VENETOCLAX
     Dosage: DAYS 1?7 CYCLE 3
     Route: 048
  5. VENETOCLAX. [Suspect]
     Active Substance: VENETOCLAX
     Indication: CHRONIC LYMPHOCYTIC LEUKAEMIA
     Dosage: LAST ADMINISTERED DATE 25/MAR/2020
     Route: 048
  6. VENETOCLAX. [Suspect]
     Active Substance: VENETOCLAX
     Dosage: DAYS 15?21, CYCLE 3
     Route: 048
  7. OBINUTUZUMAB. [Suspect]
     Active Substance: OBINUTUZUMAB
     Route: 042
  8. VENETOCLAX. [Suspect]
     Active Substance: VENETOCLAX
     Dosage: DAYS 22?28, CYCLE 3
     Route: 048
  9. VENETOCLAX. [Suspect]
     Active Substance: VENETOCLAX
     Dosage: DAYS 8?14, CYCLE 3
     Route: 048

REACTIONS (1)
  - COVID-19 pneumonia [Recovered/Resolved]

NARRATIVE: CASE EVENT DATE: 20200326
